FAERS Safety Report 6017328-4 (Version None)
Quarter: 2008Q4

REPORT INFORMATION
  Report Type: 
  Country: None (occurrence: None)
  Receive Date: 20081223
  Receipt Date: 20081216
  Transmission Date: 20090506
  Serious: Yes (Hospitalization)
  Sender: FDA-Public Use
  Company Number: US-WYE-H07261308

PATIENT
  Sex: Female
  Weight: 61.29 kg

DRUGS (7)
  1. PRISTIQ [Suspect]
     Indication: ANXIETY
     Dosage: 50 MG (FREQUNCY UNKNOWN)
     Route: 048
     Dates: start: 20081201
  2. PRISTIQ [Suspect]
     Indication: DEPRESSION
  3. HYDROCODONE BITARTRATE + ACETAMINOPHEN [Concomitant]
     Dosage: 10/650 (FREQUENCY UNKNOWN)
     Route: 065
  4. FUROSEMIDE [Concomitant]
     Dosage: 40 MG (FREQUENCY UNKNOWN)
     Route: 065
  5. TEMAZEPAM [Concomitant]
     Dosage: 30 MG (FREQUENCY UNKNOWN)
     Route: 065
  6. LIPITOR [Concomitant]
     Dosage: 80 MG (FREQUENCY UNKNOWN)
     Route: 065
  7. ZETIA [Concomitant]
     Dosage: UNKNOWN
     Route: 065

REACTIONS (7)
  - DYSPNOEA [None]
  - EYE SWELLING [None]
  - HYPERSENSITIVITY [None]
  - OEDEMA MOUTH [None]
  - ORAL PAIN [None]
  - SWELLING FACE [None]
  - URTICARIA [None]
